FAERS Safety Report 4914342-4 (Version None)
Quarter: 2006Q1

REPORT INFORMATION
  Report Type: 
  Country: None (occurrence: None)
  Receive Date: 20060213
  Receipt Date: 20060202
  Transmission Date: 20060701
  Serious: Yes (Other)
  Sender: FDA-Public Use
  Company Number: 2002-09-1976

PATIENT
  Age: 46 Year
  Sex: Male
  Weight: 68.0396 kg

DRUGS (3)
  1. PEG-INTRON (PEGINTERFERON ALFA-2B) INJECTABLE [Suspect]
     Dates: start: 20011101, end: 20020412
  2. REBETOL [Suspect]
     Dosage: ORAL
     Route: 048
     Dates: start: 20011101, end: 20020419
  3. ALCOHOL [Suspect]

REACTIONS (16)
  - ALCOHOL USE [None]
  - DELUSION [None]
  - DEPRESSION [None]
  - FEELING ABNORMAL [None]
  - GENERAL PHYSICAL CONDITION ABNORMAL [None]
  - HEADACHE [None]
  - HOMICIDE [None]
  - IMPULSE-CONTROL DISORDER [None]
  - INTENTIONAL SELF-INJURY [None]
  - IRRITABILITY [None]
  - MALAISE [None]
  - MENTAL DISORDER [None]
  - NIGHTMARE [None]
  - PAIN [None]
  - PSYCHOTIC DISORDER [None]
  - SUICIDE ATTEMPT [None]
